FAERS Safety Report 4704682-6 (Version None)
Quarter: 2005Q2

REPORT INFORMATION
  Report Type: 
  Country: None (occurrence: None)
  Receive Date: 20050629
  Receipt Date: 20050616
  Transmission Date: 20051028
  Serious: Yes (Disabling)
  Sender: FDA-Public Use
  Company Number: ERP05000097

PATIENT
  Age: 76 Year
  Sex: Female
  Weight: 63.5 kg

DRUGS (4)
  1. MACRODANTIN [Suspect]
     Indication: CYSTITIS
     Dosage: 100 MG, 4/DAY, ORAL
     Route: 048
     Dates: start: 20050610, end: 20050613
  2. DILANTIN   /AUS/ (PHENYTOIN SODIUM) [Concomitant]
  3. VITAMIN D [Concomitant]
  4. CARTIA  /AUS/  (ACETYLSALICYLIC ACID) [Concomitant]

REACTIONS (16)
  - ABDOMINAL PAIN UPPER [None]
  - CHILLS [None]
  - DYSENTERY [None]
  - FEELING HOT AND COLD [None]
  - HAEMATEMESIS [None]
  - HEADACHE [None]
  - HYPERACUSIS [None]
  - HYPERHIDROSIS [None]
  - NAUSEA [None]
  - PARAESTHESIA [None]
  - PHOTOSENSITIVITY REACTION [None]
  - PRURITUS [None]
  - REFUSAL OF TREATMENT BY PATIENT [None]
  - THERAPEUTIC AGENT TOXICITY [None]
  - URTICARIA [None]
  - VOMITING [None]
